FAERS Safety Report 6220200-8 (Version None)
Quarter: 2009Q2

REPORT INFORMATION
  Report Type: 
  Country: None (occurrence: None)
  Receive Date: 20090605
  Receipt Date: 20090528
  Transmission Date: 20091009
  Serious: Yes (Other)
  Sender: FDA-Public Use
  Company Number: 09GB001158

PATIENT
  Age: 6 Year
  Sex: Female

DRUGS (2)
  1. VALPROIC ACID [Suspect]
     Indication: DISEASE RECURRENCE
  2. VALPROIC ACID [Suspect]
     Indication: EPILEPSY

REACTIONS (3)
  - CEREBRAL ATROPHY [None]
  - DROP ATTACKS [None]
  - EPILEPSY [None]
